FAERS Safety Report 8283035-0 (Version None)
Quarter: 2012Q1

REPORT INFORMATION
  Report Type: 
  Country: None (occurrence: None)
  Receive Date: 20120328
  Receipt Date: 20120314
  Transmission Date: 20120608
  Serious: Yes (Death, Life-Threatening, Hospitalization)
  Sender: FDA-Public Use
  Company Number: 2012PROUSA01034

PATIENT
  Age: 72 Year
  Sex: Male

DRUGS (1)
  1. PROVENGE [Suspect]
     Indication: PROSTATE CANCER METASTATIC
     Dosage: 250 ML, SINGLE, INTRAVENOUS
     Route: 042
     Dates: start: 20120127, end: 20120127

REACTIONS (4)
  - AIR EMBOLISM [None]
  - INFUSION SITE HAEMATOMA [None]
  - ANAESTHETIC COMPLICATION [None]
  - CARDIAC ARREST [None]
